FAERS Safety Report 21637793 (Version 1)
Quarter: 2022Q4

REPORT INFORMATION
  Report Type: Spontaneous
  Country: US (occurrence: US)
  Receive Date: 20221124
  Receipt Date: 20221124
  Transmission Date: 20230113
  Serious: No
  Sender: FDA-Public Use
  Company Number: US-KERYX BIOPHARMACEUTICALS INC.-2022US009442

PATIENT
  Sex: Male

DRUGS (2)
  1. AURYXIA [Suspect]
     Active Substance: TETRAFERRIC TRICITRATE DECAHYDRATE
     Indication: Hyperphosphataemia
     Dosage: 1 GRAM, QD
     Route: 048
     Dates: start: 202007
  2. SEVELAMER [Concomitant]
     Active Substance: SEVELAMER

REACTIONS (2)
  - Diarrhoea [Recovered/Resolved]
  - Gastritis [Recovered/Resolved]
